FAERS Safety Report 5533569-4 (Version None)
Quarter: 2007Q4

REPORT INFORMATION
  Report Type: 
  Country: None (occurrence: None)
  Receive Date: 20071129
  Receipt Date: 20071121
  Transmission Date: 20080405
  Serious: Yes (Death, Hospitalization)
  Sender: FDA-Public Use
  Company Number: 2007SP021227

PATIENT
  Age: 59 Year
  Sex: Female
  Weight: 88 kg

DRUGS (6)
  1. TEMOZOLOMIDE [Suspect]
     Indication: GLIOBLASTOMA MULTIFORME
     Dosage: 75 MG/M2; QD; PO; 1450 MG; PO
     Route: 048
     Dates: start: 20070716, end: 20070801
  2. TEMOZOLOMIDE [Suspect]
     Indication: GLIOBLASTOMA MULTIFORME
     Dosage: 75 MG/M2; QD; PO; 1450 MG; PO
     Route: 048
     Dates: start: 20070927, end: 20071001
  3. BACTRIM DS [Suspect]
     Indication: DRUG USE FOR UNKNOWN INDICATION
     Dosage: TIW; PO
     Route: 048
     Dates: start: 20070716
  4. DECADRON [Suspect]
     Indication: DRUG USE FOR UNKNOWN INDICATION
     Dosage: 4 MG; QD; PO
     Route: 048
  5. KEPPRA [Suspect]
     Indication: DRUG USE FOR UNKNOWN INDICATION
     Dosage: 500 MG; BID; PO
     Route: 048
  6. TEMOZOLOMIDE [Suspect]

REACTIONS (14)
  - ABASIA [None]
  - ALANINE AMINOTRANSFERASE INCREASED [None]
  - ASTHENIA [None]
  - COGNITIVE DISORDER [None]
  - CUSHING'S SYNDROME [None]
  - GLIOBLASTOMA MULTIFORME [None]
  - LETHARGY [None]
  - LYMPHOPENIA [None]
  - MALIGNANT NEOPLASM PROGRESSION [None]
  - MUSCULAR WEAKNESS [None]
  - NO THERAPEUTIC RESPONSE [None]
  - OPPORTUNISTIC INFECTION [None]
  - ORAL CANDIDIASIS [None]
  - SYSTEMIC CANDIDA [None]
